FAERS Safety Report 18639889 (Version 1)
Quarter: 2020Q4

REPORT INFORMATION
  Report Type: Spontaneous
  Country: US (occurrence: US)
  Receive Date: 20201220
  Receipt Date: 20201220
  Transmission Date: 20210114
  Serious: No
  Sender: FDA-Public Use
  Company Number: US-PACIRA-201900388

PATIENT

DRUGS (2)
  1. EXPAREL [Suspect]
     Active Substance: BUPIVACAINE
     Indication: GASTRECTOMY
     Dosage: 20ML VIAL WITH PLAIN MARCAINE
     Route: 065
  2. MARCAINE [Suspect]
     Active Substance: BUPIVACAINE HYDROCHLORIDE
     Indication: GASTRECTOMY
     Dosage: UNKNOWN
     Route: 065

REACTIONS (2)
  - Erythema [Unknown]
  - Skin irritation [Unknown]
